FAERS Safety Report 5126870-X (Version None)
Quarter: 2006Q4

REPORT INFORMATION
  Report Type: 
  Country: None (occurrence: None)
  Receive Date: 20061013
  Receipt Date: 20061003
  Transmission Date: 20070319
  Serious: Yes (Death, Hospitalization)
  Sender: FDA-Public Use
  Company Number: US-JNJFOC-20060802397

PATIENT
  Sex: Male
  Weight: 85.3 kg

DRUGS (11)
  1. REMICADE [Suspect]
     Route: 042
  2. REMICADE [Suspect]
     Route: 042
  3. REMICADE [Suspect]
     Indication: COLITIS ULCERATIVE
     Route: 042
  4. EXTRA STRENGTH TYLENOL [Suspect]
  5. EXTRA STRENGTH TYLENOL [Suspect]
     Indication: SCROTAL PAIN
  6. AZATHIOPRINE [Suspect]
     Indication: ARTHRITIS
     Route: 048
  7. AZATHIOPRINE [Suspect]
     Indication: COLITIS ULCERATIVE
     Route: 048
  8. COLAZAL [Suspect]
     Indication: COLITIS ULCERATIVE
  9. DOXYCYCLINE [Suspect]
     Indication: SCROTAL INFECTION
  10. ADVIL [Suspect]
     Indication: SCROTAL PAIN
  11. ALEVE [Suspect]
     Indication: SCROTAL PAIN
     Route: 048

REACTIONS (9)
  - DIALYSIS [None]
  - HAEMOGLOBIN DECREASED [None]
  - HEPATIC FAILURE [None]
  - MEMORY IMPAIRMENT [None]
  - ORCHITIS [None]
  - OVERDOSE [None]
  - PERIPHERAL COLDNESS [None]
  - PLATELET COUNT DECREASED [None]
  - RENAL FAILURE [None]
